FAERS Safety Report 9588953 (Version 1)
Quarter: 2013Q4

REPORT INFORMATION
  Report Type: Spontaneous
  Country: US (occurrence: US)
  Receive Date: 20131003
  Receipt Date: 20131003
  Transmission Date: 20140711
  Serious: No
  Sender: FDA-Public Use
  Company Number: US-AMGEN-USASP2012067080

PATIENT
  Age: 56 Year
  Sex: Male
  Weight: 106.58 kg

DRUGS (9)
  1. ENBREL [Suspect]
     Indication: PSORIASIS
     Dosage: 50 MG, 2 TIMES/WK
     Route: 058
  2. NAPROXEN [Concomitant]
     Dosage: 250 MG, UNK
  3. DIOVAN HCT [Concomitant]
     Dosage: 160-12.5
  4. DOXAZOSIN [Concomitant]
     Dosage: 1 MG, UNK
  5. METHOTREXATE [Concomitant]
     Dosage: 2.5 MG, UNK
  6. FOLIC ACID [Concomitant]
     Dosage: UNK
  7. CENTRUM SILVER                     /02363801/ [Concomitant]
     Dosage: UNK
  8. POTASSIUM [Concomitant]
     Dosage: 75 MG, UNK
  9. OSTEO BI-FLEX [Concomitant]
     Dosage: UNK, DOUBLE STRENGTH.

REACTIONS (1)
  - Increased tendency to bruise [Unknown]
